FAERS Safety Report 11677465 (Version 1)
Quarter: 2015Q4

REPORT INFORMATION
  Report Type: Spontaneous
  Country: US (occurrence: US)
  Receive Date: 20151027
  Receipt Date: 20151027
  Transmission Date: 20160304
  Serious: No
  Sender: FDA-Public Use
  Company Number: US-ELI_LILLY_AND_COMPANY-US201010003837

PATIENT
  Sex: Female

DRUGS (2)
  1. FORTEO [Suspect]
     Active Substance: TERIPARATIDE
     Dosage: 20 UG, DAILY (1/D)
     Dates: start: 20101004, end: 20101010
  2. ACTONEL                                 /AUT/ [Concomitant]

REACTIONS (5)
  - Vision blurred [Unknown]
  - Erythema [Unknown]
  - Dizziness [Unknown]
  - Headache [Unknown]
  - Gait disturbance [Unknown]
